FAERS Safety Report 24443251 (Version 1)
Quarter: 2024Q4

REPORT INFORMATION
  Report Type: Spontaneous
  Country: BR (occurrence: BR)
  Receive Date: 20241016
  Receipt Date: 20241016
  Transmission Date: 20250114
  Serious: Yes (Hospitalization, Other)
  Sender: CELLTRION
  Company Number: BR-CELLTRION INC.-2024BR010756

PATIENT

DRUGS (4)
  1. TRUXIMA [Suspect]
     Active Substance: RITUXIMAB-ABBS
     Indication: Neuromyelitis optica spectrum disorder
     Dosage: 4 AMPOULES EVERY 6 MONTHS, BUT HER ATTACK DOSE WILL BE 2 WEEKS APART
     Route: 042
  2. PREDNISONE [Concomitant]
     Active Substance: PREDNISONE
     Indication: Neuromyelitis optica spectrum disorder
     Dosage: 1 PILL A DAY (START DATE 1 YEAR)
     Route: 048
  3. PREDNISONE [Concomitant]
     Active Substance: PREDNISONE
     Dosage: 20 MG, 3 TABLETS A DAY
     Route: 048
  4. PREDNISONE [Concomitant]
     Active Substance: PREDNISONE
     Dosage: 4 PILLS A DAY (START DATE: 1 YEAR)
     Route: 048

REACTIONS (9)
  - Autoimmune haemolytic anaemia [Unknown]
  - Hypoglycaemia [Unknown]
  - Gait disturbance [Unknown]
  - Throat irritation [Unknown]
  - Asthenia [Unknown]
  - Dyspnoea [Unknown]
  - Dizziness [Unknown]
  - Pyrexia [Unknown]
  - Off label use [Unknown]

NARRATIVE: CASE EVENT DATE: 20240513
